FAERS Safety Report 10006716 (Version 2)
Quarter: 2014Q1

REPORT INFORMATION
  Report Type: Spontaneous
  Country: US (occurrence: None)
  Receive Date: 20140311
  Receipt Date: 20140318
  Transmission Date: 20141002
  Serious: Yes (Disabling, Other)
  Sender: FDA-Public Use
  Company Number: 1402-0440

PATIENT
  Age: 79 Year
  Sex: Male

DRUGS (1)
  1. EYLEA [Suspect]
     Indication: AGE-RELATED MACULAR DEGENERATION
     Dosage: 2 MG, 1 IN 6 WK, INTRAVITREAL
     Dates: start: 20130506

REACTIONS (5)
  - Drug hypersensitivity [None]
  - Vitreous disorder [None]
  - Visual acuity reduced [None]
  - Blindness transient [None]
  - Vision blurred [None]
